FAERS Safety Report 15515118 (Version 3)
Quarter: 2024Q2

REPORT INFORMATION
  Report Type: Other
  Country: US (occurrence: None)
  Receive Date: 20181017
  Receipt Date: 20240523
  Transmission Date: 20240716
  Serious: Yes (Other)
  Sender: FDA-Public Use
  Company Number: US-ROCHE-2198874

PATIENT
  Age: 57 Year
  Sex: Female

DRUGS (1)
  1. OCREVUS [Suspect]
     Active Substance: OCRELIZUMAB
     Indication: Multiple sclerosis
     Dosage: ONGOING:NO
     Route: 065

REACTIONS (2)
  - Myocardial infarction [Unknown]
  - Haematological infection [Recovered/Resolved]

NARRATIVE: CASE EVENT DATE: 20180701
